FAERS Safety Report 4704913-2 (Version None)
Quarter: 2005Q2

REPORT INFORMATION
  Report Type: 
  Country: None (occurrence: None)
  Receive Date: 20050629
  Receipt Date: 20050629
  Transmission Date: 20051028
  Serious: Yes (Disabling)
  Sender: FDA-Public Use
  Company Number: None

PATIENT
  Age: 42 Year
  Sex: Female
  Weight: 68.0396 kg

DRUGS (2)
  1. ZICAM  COLD REMEDY [Suspect]
     Indication: CRYING
     Dosage: 1 TIME 2 SQUIRTS
  2. ZICAM  COLD REMEDY [Suspect]
     Indication: NASAL CONGESTION
     Dosage: 1 TIME 2 SQUIRTS

REACTIONS (3)
  - AGEUSIA [None]
  - ANOSMIA [None]
  - BURNING SENSATION [None]
